FAERS Safety Report 7392611-9 (Version None)
Quarter: 2011Q2

REPORT INFORMATION
  Report Type: 
  Country: None (occurrence: None)
  Receive Date: 20110404
  Receipt Date: 20110401
  Transmission Date: 20111010
  Serious: Yes (Death, Life-Threatening, Hospitalization)
  Sender: FDA-Public Use
  Company Number: MX-B.I. PHARMACEUTICALS,INC./RIDGEFIELD-2011-MX-00070MX

PATIENT
  Sex: Male
  Weight: 81 kg

DRUGS (3)
  1. ZALDIAR [Concomitant]
     Indication: ARTHRALGIA
     Route: 048
     Dates: start: 20110208, end: 20110305
  2. AGGRENOX [Suspect]
     Indication: ANTIPLATELET THERAPY
     Dosage: TWO CAPSULES DAILY
     Route: 048
     Dates: start: 20110130, end: 20110305
  3. COLCHICINA [Concomitant]
     Indication: HYPERURICAEMIA
     Dosage: 1 MG
     Route: 048
     Dates: start: 20110301, end: 20110305

REACTIONS (3)
  - CEREBRAL INFARCTION [None]
  - CEREBRAL HAEMORRHAGE [None]
  - PLEURAL EFFUSION [None]
